FAERS Safety Report 9264866 (Version 1)
Quarter: 2013Q2

REPORT INFORMATION
  Report Type: Report from Study
  Country: MX (occurrence: MX)
  Receive Date: 20130501
  Receipt Date: 20130501
  Transmission Date: 20140414
  Serious: Yes (Other)
  Sender: FDA-Public Use
  Company Number: PHHY2013MX041928

PATIENT
  Age: 92 Year
  Sex: Female

DRUGS (2)
  1. DIOVAN [Suspect]
     Indication: HYPERTENSION
     Dosage: 1 DF (80 MG), DAILY
     Route: 048
     Dates: start: 20050317
  2. NORVASC [Concomitant]
     Indication: HYPERTENSION
     Dosage: 1 DF (UKN), DAILY
     Dates: start: 200503

REACTIONS (3)
  - Hearing impaired [Not Recovered/Not Resolved]
  - Skin sensitisation [Not Recovered/Not Resolved]
  - Skin discolouration [Not Recovered/Not Resolved]
